FAERS Safety Report 14784439 (Version 2)
Quarter: 2018Q2

REPORT INFORMATION
  Report Type: Spontaneous
  Country: JP (occurrence: JP)
  Receive Date: 20180420
  Receipt Date: 20180605
  Transmission Date: 20180711
  Serious: Yes (Hospitalization, Other)
  Sender: FDA-Public Use
  Company Number: PHJP2018JP009120

PATIENT
  Age: 20 Year
  Sex: Male

DRUGS (3)
  1. VEGAMOX OPHTHALMIC SOLUTION 0.5% [Suspect]
     Active Substance: MOXIFLOXACIN HYDROCHLORIDE
     Dosage: UNK, QID
     Route: 047
  2. VEGAMOX OPHTHALMIC SOLUTION 0.5% [Suspect]
     Active Substance: MOXIFLOXACIN HYDROCHLORIDE
     Indication: CORNEAL EROSION
     Dosage: UNK, 6QD
     Route: 047
     Dates: start: 20170831
  3. FLUOROMETHOLONE. [Concomitant]
     Active Substance: FLUOROMETHOLONE
     Indication: CORNEAL EROSION
     Dosage: UNK UNK, BID
     Route: 047

REACTIONS (6)
  - Pythium insidiosum infection [Recovering/Resolving]
  - Corneal perforation [Unknown]
  - Corneal erosion [Unknown]
  - Disease progression [Unknown]
  - Drug ineffective [Unknown]
  - Keratitis fungal [Unknown]

NARRATIVE: CASE EVENT DATE: 20170908
